FAERS Safety Report 7374320-5 (Version None)
Quarter: 2011Q1

REPORT INFORMATION
  Report Type: 
  Country: None (occurrence: None)
  Receive Date: 20110316
  Receipt Date: 20110301
  Transmission Date: 20110831
  Serious: Yes (Life-Threatening)
  Sender: FDA-Public Use
  Company Number: AUR-APL-2011-00865

PATIENT
  Age: 65 Year
  Sex: Male

DRUGS (8)
  1. APREPITANT [Suspect]
     Dosage: INTRAVENOUS
     Route: 042
     Dates: start: 20110225, end: 20110225
  2. MORPHINE [Suspect]
     Dosage: 30MG-ORAL
     Route: 048
  3. ONDANSETRON [Suspect]
     Dosage: 8MG-ORAL
     Route: 048
  4. DEXAMETHASONE [Suspect]
     Dosage: 4MG-ORAL
     Route: 048
     Dates: end: 20110225
  5. CISPLATIN [Suspect]
     Dosage: INTRAVENOUS
     Route: 042
     Dates: start: 20101221, end: 20110225
  6. PARACETAMOL [Concomitant]
  7. DALTEPARIN SODIUM [Suspect]
     Indication: LUNG NEOPLASM MALIGNANT
     Dates: start: 20101220, end: 20110225
  8. PEMETREXED [Suspect]
     Dosage: INTRAVENOUS
     Route: 042
     Dates: start: 20101221, end: 20110225

REACTIONS (3)
  - PERITONITIS [None]
  - FAECALOMA [None]
  - INTESTINAL PERFORATION [None]
